FAERS Safety Report 10986436 (Version 2)
Quarter: 2015Q2

REPORT INFORMATION
  Report Type: Spontaneous
  Country: US (occurrence: US)
  Receive Date: 20150404
  Receipt Date: 20150525
  Transmission Date: 20150821
  Serious: No
  Sender: FDA-Public Use
  Company Number: US-JNJFOC-20130619000

PATIENT
  Age: 71 Year
  Sex: Female
  Weight: 53.07 kg

DRUGS (6)
  1. QUERCETIN [Concomitant]
     Active Substance: QUERCETIN
     Indication: MULTIPLE ALLERGIES
     Dosage: 1 WEEK
     Route: 065
  2. OMEGA FISH OILS [Concomitant]
     Indication: NUTRITIONAL SUPPLEMENTATION
     Route: 065
  3. BROMELAIN [Concomitant]
     Active Substance: BROMELAINS
     Indication: DYSPEPSIA
     Dosage: 1 WEEK
     Route: 065
  4. IMODIUM MULTI-SYMPTOM RELIEF [Suspect]
     Active Substance: DIMETHICONE\LOPERAMIDE HYDROCHLORIDE
     Route: 048
  5. IMODIUM MULTI-SYMPTOM RELIEF [Suspect]
     Active Substance: DIMETHICONE\LOPERAMIDE HYDROCHLORIDE
     Indication: DIARRHOEA
     Dosage: 1-2 CAPLETS
     Route: 048
     Dates: start: 20130614, end: 20130614
  6. MULTIVITAMINS [Concomitant]
     Active Substance: VITAMINS
     Indication: NUTRITIONAL SUPPLEMENTATION
     Route: 065

REACTIONS (2)
  - Drug ineffective [Unknown]
  - Constipation [Recovered/Resolved]

NARRATIVE: CASE EVENT DATE: 20130615
